FAERS Safety Report 22043593 (Version 1)
Quarter: 2023Q1

REPORT INFORMATION
  Report Type: Spontaneous
  Country: US (occurrence: US)
  Receive Date: 20230228
  Receipt Date: 20230228
  Transmission Date: 20230417
  Serious: Yes (Death, Hospitalization)
  Sender: FDA-Public Use
  Company Number: US-STRIDES ARCOLAB LIMITED-2023SP002974

PATIENT
  Age: 24 Year
  Sex: Female

DRUGS (11)
  1. VANCOMYCIN [Suspect]
     Active Substance: VANCOMYCIN
     Indication: Evidence based treatment
     Dosage: UNK
     Route: 065
  2. VANCOMYCIN [Suspect]
     Active Substance: VANCOMYCIN
     Indication: Beta haemolytic streptococcal infection
     Dosage: UNK
     Route: 065
  3. MEROPENEM [Suspect]
     Active Substance: MEROPENEM
     Indication: Beta haemolytic streptococcal infection
     Dosage: UNK
     Route: 065
  4. ALBENDAZOLE [Concomitant]
     Active Substance: ALBENDAZOLE
     Indication: Neurocysticercosis
     Dosage: UNK
     Route: 065
  5. ALBENDAZOLE [Concomitant]
     Active Substance: ALBENDAZOLE
     Dosage: UNK
     Route: 065
  6. AMPICILLIN [Concomitant]
     Active Substance: AMPICILLIN
     Indication: Evidence based treatment
     Dosage: UNK
     Route: 065
  7. DEXAMETHASONE [Concomitant]
     Active Substance: DEXAMETHASONE
     Indication: Neurocysticercosis
     Dosage: 0.1 MILLIGRAM/KILOGRAM (PER DAY)
     Route: 065
  8. SODIUM CHLORIDE [Concomitant]
     Active Substance: SODIUM CHLORIDE
     Indication: Brain oedema
     Dosage: UNK
     Route: 065
  9. SODIUM CHLORIDE [Concomitant]
     Active Substance: SODIUM CHLORIDE
     Dosage: UNK
     Route: 065
  10. PRAZIQUANTEL [Concomitant]
     Active Substance: PRAZIQUANTEL
     Indication: Neurocysticercosis
     Dosage: UNK
     Route: 065
  11. CEFTRIAXONE SODIUM [Concomitant]
     Active Substance: CEFTRIAXONE SODIUM
     Indication: Evidence based treatment
     Dosage: UNK
     Route: 065

REACTIONS (1)
  - Drug ineffective [Fatal]
